FAERS Safety Report 5072850-2 (Version None)
Quarter: 2006Q3

REPORT INFORMATION
  Report Type: 
  Country: None (occurrence: None)
  Receive Date: 20060802
  Receipt Date: 20060720
  Transmission Date: 20061208
  Serious: Yes (Other)
  Sender: FDA-Public Use
  Company Number: HQWYE282724JUL06

PATIENT
  Age: 51 Year
  Sex: Female

DRUGS (1)
  1. PREMELLE [Suspect]
     Indication: HORMONE REPLACEMENT THERAPY
     Dosage: 0.625MG/2.5MG TABLET DAILY ORAL
     Route: 048
     Dates: start: 20010602, end: 20051229

REACTIONS (1)
  - UTERINE NEOPLASM [None]
